FAERS Safety Report 25640518 (Version 1)
Quarter: 2025Q3

REPORT INFORMATION
  Report Type: Spontaneous
  Country: US (occurrence: None)
  Receive Date: 20250801
  Receipt Date: 20250801
  Transmission Date: 20251021
  Serious: Yes (Hospitalization)
  Sender: FDA-CTU
  Company Number: None

PATIENT
  Age: 12 Year
  Sex: Female
  Weight: 33.4 kg

DRUGS (7)
  1. EPIDIOLEX [Suspect]
     Active Substance: CANNABIDIOL
     Indication: Lennox-Gastaut syndrome
     Route: 048
     Dates: start: 20221205
  2. VALPROIC ACID [Suspect]
     Active Substance: VALPROIC ACID
  3. Atomoxetine 25mg capsules [Concomitant]
  4. CLOBAZAM [Concomitant]
     Active Substance: CLOBAZAM
  5. Cyproheptadine 2mg/5ml solution [Concomitant]
  6. Trazodone 50 mg tablets [Concomitant]
  7. Valtoco 10mg Nasal Spray [Concomitant]

REACTIONS (1)
  - Pancreatitis [None]

NARRATIVE: CASE EVENT DATE: 20250729
